FAERS Safety Report 4444526-3 (Version None)
Quarter: 2004Q3

REPORT INFORMATION
  Report Type: 
  Country: None (occurrence: None)
  Receive Date: 20040902
  Receipt Date: 20040823
  Transmission Date: 20050211
  Serious: Yes (Disabling)
  Sender: FDA-Public Use
  Company Number: HQWYE717628JUN04

PATIENT
  Age: 28 Year
  Sex: Female
  Weight: 65.83 kg

DRUGS (7)
  1. EFFEXOR XR [Suspect]
     Indication: DEPRESSION
     Dosage: ORAL
     Route: 048
     Dates: start: 19990101, end: 20010101
  2. EFFEXOR XR [Suspect]
     Indication: POSTPARTUM DEPRESSION
     Dosage: ORAL
     Route: 048
     Dates: start: 19990101, end: 20010101
  3. EFFEXOR XR [Suspect]
     Dosage: 300 MG 1X PER 1 DAY, ORAL
     Route: 048
     Dates: start: 20010901, end: 20011101
  4. EFFEXOR XR [Suspect]
     Dosage: 150 MG 1X PER 1 DAY, ORAL
     Route: 048
     Dates: start: 20011101, end: 20040601
  5. EFFEXOR XR [Suspect]
     Dosage: TAPERED HER DAILY DOSE TO 75 MG AND THEN TO 37.5 MG LAST WEEK, ORAL
     Route: 048
     Dates: start: 20040601, end: 20040101
  6. ADDERALL [Concomitant]
  7. KLONOPIN [Concomitant]

REACTIONS (9)
  - DRUG EXPOSURE DURING PREGNANCY [None]
  - DRUG WITHDRAWAL SYNDROME [None]
  - FEMALE SEXUAL DYSFUNCTION [None]
  - PARAESTHESIA [None]
  - PARAESTHESIA ORAL [None]
  - SENSORY DISTURBANCE [None]
  - SOCIAL AVOIDANT BEHAVIOUR [None]
  - UNEVALUABLE EVENT [None]
  - VISUAL DISTURBANCE [None]
